FAERS Safety Report 7960035-9 (Version None)
Quarter: 2011Q4

REPORT INFORMATION
  Report Type: 
  Country: None (occurrence: None)
  Receive Date: 20111206
  Receipt Date: 20111128
  Transmission Date: 20120403
  Serious: Yes (Other)
  Sender: FDA-Public Use
  Company Number: PHHY2011SI104386

PATIENT
  Age: 71 Year
  Sex: Male

DRUGS (5)
  1. PERINDOPRIL [Concomitant]
     Dosage: 4 MG, BID
  2. INDAPAMIDE [Concomitant]
     Dosage: 1.25 MG, QD
  3. TADALAFIL [Concomitant]
  4. LAMISIL [Suspect]
     Indication: TINEA INFECTION
     Route: 048
  5. AMLODIPINE [Concomitant]
     Dosage: 10 MG, QD

REACTIONS (6)
  - DRUG INTERACTION [None]
  - ABDOMINAL DISCOMFORT [None]
  - NAUSEA [None]
  - BLOOD PRESSURE INCREASED [None]
  - ARRHYTHMIA [None]
  - ERYTHEMA [None]
